FAERS Safety Report 21531659 (Version 1)
Quarter: 2022Q4

REPORT INFORMATION
  Report Type: Spontaneous
  Country: US (occurrence: None)
  Receive Date: 20221028
  Receipt Date: 20221028
  Transmission Date: 20230113
  Serious: Yes (Hospitalization)
  Sender: FDA-Public Use
  Company Number: None

PATIENT
  Sex: Female
  Weight: 66.68 kg

DRUGS (12)
  1. LENALIDOMIDE [Suspect]
     Active Substance: LENALIDOMIDE
     Indication: Plasma cell myeloma
     Dosage: FREQUENCY : DAILY;?OTHER ROUTE : 21 DAYS ON,7 D OFF;?
     Route: 050
     Dates: start: 20220402, end: 20221027
  2. ALBUTEROL SULFATE [Suspect]
     Active Substance: ALBUTEROL SULFATE
  3. ASPIRIN [Concomitant]
  4. B-COMPLEX C [Concomitant]
  5. CLOPIDOGREL [Concomitant]
  6. COENZYME Q10 [Concomitant]
     Active Substance: DIETARY SUPPLEMENT\UBIDECARENONE
  7. CORAL CALCIUM [Concomitant]
  8. EZETIMIBE [Concomitant]
     Active Substance: EZETIMIBE
  9. PANTOPRAZOLE [Concomitant]
     Active Substance: PANTOPRAZOLE
  10. PEPCID AC [Concomitant]
     Active Substance: FAMOTIDINE
  11. ROSUVASTATIN [Concomitant]
  12. VITAMIN C [Concomitant]
     Active Substance: ASCORBIC ACID

REACTIONS (1)
  - Haemorrhage [None]
